FAERS Safety Report 8376722-7 (Version None)
Quarter: 2012Q2

REPORT INFORMATION
  Report Type: 
  Country: None (occurrence: None)
  Receive Date: 20120522
  Receipt Date: 20120509
  Transmission Date: 20120825
  Serious: No
  Sender: FDA-Public Use
  Company Number: US-ASTRAZENECA-2011SE08331

PATIENT
  Age: 64 Year
  Sex: Female

DRUGS (10)
  1. NEXIUM [Suspect]
     Indication: GASTROOESOPHAGEAL REFLUX DISEASE
     Route: 048
  2. THYROID MEDICATIONS [Suspect]
  3. NEXIUM [Suspect]
     Route: 048
  4. NEXIUM [Suspect]
     Route: 048
  5. NEXIUM [Suspect]
     Route: 048
  6. HYDROCHLORIZIDE [Concomitant]
  7. NEXIUM [Suspect]
     Route: 048
  8. LIPITOR [Concomitant]
  9. NEXIUM [Suspect]
     Indication: DYSPEPSIA
     Route: 048
  10. TOPROL-XL [Suspect]
     Route: 048

REACTIONS (10)
  - CHOKING [None]
  - PALPITATIONS [None]
  - THROAT IRRITATION [None]
  - GASTROOESOPHAGEAL REFLUX DISEASE [None]
  - INSOMNIA [None]
  - INTENTIONAL DRUG MISUSE [None]
  - DYSPEPSIA [None]
  - BURNING SENSATION [None]
  - OFF LABEL USE [None]
  - REGURGITATION [None]
